FAERS Safety Report 7788701-9 (Version None)
Quarter: 2011Q3

REPORT INFORMATION
  Report Type: 
  Country: None (occurrence: None)
  Receive Date: 20110928
  Receipt Date: 20110616
  Transmission Date: 20111222
  Serious: Yes (Hospitalization, Disabling)
  Sender: FDA-Public Use
  Company Number: GB-ACCORD-009693

PATIENT
  Age: 43 Year
  Sex: Female
  Weight: 57 kg

DRUGS (5)
  1. DEXAMETHASONE [Concomitant]
  2. DICLOFENAC SODIUM [Concomitant]
  3. DOCETAXEL [Suspect]
     Indication: BREAST CANCER
     Dosage: 100.00-MG/M2/ INTRAVENOUS (NOT OTHERWISE SPECIFIED)
     Route: 042
  4. ONDANSETRON [Concomitant]
  5. ACETAMINOPHEN AND CODEINE PHOSPHATE [Concomitant]

REACTIONS (3)
  - MYOSITIS [None]
  - WEIGHT BEARING DIFFICULTY [None]
  - IMMOBILE [None]
